FAERS Safety Report 16343418 (Version 1)
Quarter: 2019Q2

REPORT INFORMATION
  Report Type: Spontaneous
  Country: FI (occurrence: FI)
  Receive Date: 20190522
  Receipt Date: 20190522
  Transmission Date: 20190711
  Serious: Yes (Death, Other)
  Sender: FDA-Public Use
  Company Number: FI-CANTON LABORATORIES, LLC-2067307

PATIENT
  Age: 52 Year
  Sex: Male

DRUGS (11)
  1. CITALOPRAM [Suspect]
     Active Substance: CITALOPRAM HYDROBROMIDE
     Route: 065
  2. TRIMIPRAMINE [Suspect]
     Active Substance: TRIMIPRAMINE
     Route: 065
  3. VALPROIC ACID. [Suspect]
     Active Substance: VALPROIC ACID
     Route: 065
  4. NAPROSYN [Suspect]
     Active Substance: NAPROXEN
     Indication: PRODUCT USED FOR UNKNOWN INDICATION
     Route: 065
  5. HYDROXYZINE [Suspect]
     Active Substance: HYDROXYZINE HYDROCHLORIDE
     Route: 065
  6. DULOXETINE. [Suspect]
     Active Substance: DULOXETINE
     Route: 065
  7. DESMETHYLIMIPRAMINE [Suspect]
     Active Substance: DESIPRAMINE
     Route: 065
  8. TRAMADOL HCL [Suspect]
     Active Substance: TRAMADOL HYDROCHLORIDE
     Route: 065
  9. DIAZEPAM. [Suspect]
     Active Substance: DIAZEPAM
     Route: 065
  10. PREGABALIN. [Suspect]
     Active Substance: PREGABALIN
     Route: 065
  11. PROPRANOLOL [Suspect]
     Active Substance: PROPRANOLOL HYDROCHLORIDE
     Route: 065

REACTIONS (4)
  - Completed suicide [Fatal]
  - Death [Fatal]
  - Drug interaction [Fatal]
  - Overdose [Not Recovered/Not Resolved]
